FAERS Safety Report 13781292 (Version 1)
Quarter: 2017Q3

REPORT INFORMATION
  Report Type: Spontaneous
  Country: US (occurrence: US)
  Receive Date: 20170721
  Receipt Date: 20170721
  Transmission Date: 20171127
  Serious: Yes (Hospitalization)
  Sender: FDA-Public Use
  Company Number: None

PATIENT
  Age: 55 Year
  Sex: Male
  Weight: 90.85 kg

DRUGS (1)
  1. LISINOPRIL. [Suspect]
     Active Substance: LISINOPRIL
     Indication: HYPERTENSION
     Route: 048
     Dates: start: 20170407, end: 20170509

REACTIONS (4)
  - Laryngeal oedema [None]
  - Anaphylactic reaction [None]
  - Therapy change [None]
  - Angioedema [None]

NARRATIVE: CASE EVENT DATE: 20170510
